FAERS Safety Report 7802769-2 (Version None)
Quarter: 2011Q4

REPORT INFORMATION
  Report Type: 
  Country: None (occurrence: None)
  Receive Date: 20111007
  Receipt Date: 20110927
  Transmission Date: 20120403
  Serious: Yes (Hospitalization)
  Sender: FDA-Public Use
  Company Number: KR-US-EMD SERONO, INC.-7085797

PATIENT
  Sex: Male
  Weight: 40 kg

DRUGS (1)
  1. SAIZEN [Suspect]
     Indication: GROWTH RETARDATION
     Route: 058
     Dates: start: 20100708, end: 20110926

REACTIONS (2)
  - ASTHMA [None]
  - PNEUMONIA [None]
